FAERS Safety Report 7501662-2 (Version None)
Quarter: 2011Q2

REPORT INFORMATION
  Report Type: 
  Country: None (occurrence: None)
  Receive Date: 20110524
  Receipt Date: 20110512
  Transmission Date: 20111010
  Serious: Yes (Other)
  Sender: FDA-Public Use
  Company Number: CH-ELI_LILLY_AND_COMPANY-CH201105004076

PATIENT
  Age: 35 Year
  Sex: Female

DRUGS (4)
  1. ELEVIT PRONATAL [Concomitant]
     Dosage: UNK
     Dates: start: 20100615
  2. LEXOTANIL [Concomitant]
     Dosage: 6 MG, QD
     Dates: start: 20100101, end: 20100601
  3. CYMBALTA [Suspect]
     Indication: DEPRESSION
     Dosage: 30 MG, QD
     Dates: start: 20100101, end: 20100601
  4. LEXOTANIL [Concomitant]
     Dosage: 4 MG, QD
     Dates: start: 20100601

REACTIONS (2)
  - ABORTION SPONTANEOUS [None]
  - DRUG EXPOSURE DURING PREGNANCY [None]
